FAERS Safety Report 6160934-7 (Version None)
Quarter: 2009Q2

REPORT INFORMATION
  Report Type: 
  Country: None (occurrence: None)
  Receive Date: 20090420
  Receipt Date: 20090409
  Transmission Date: 20091009
  Serious: Yes (Disabling, Other)
  Sender: FDA-Public Use
  Company Number: ZA-BAXTER-2009BH004104

PATIENT
  Age: 57 Year
  Sex: Female

DRUGS (2)
  1. BALANCED SALT [Suspect]
     Indication: CATARACT OPERATION
     Route: 065
     Dates: start: 20090223, end: 20090223
  2. BALANCED SALT [Suspect]
     Route: 065
     Dates: start: 20090223, end: 20090223

REACTIONS (1)
  - ENDOPHTHALMITIS [None]
